FAERS Safety Report 7660575-6 (Version None)
Quarter: 2011Q3

REPORT INFORMATION
  Report Type: 
  Country: None (occurrence: None)
  Receive Date: 20110805
  Receipt Date: 20101102
  Transmission Date: 20111222
  Serious: No
  Sender: FDA-Public Use
  Company Number: US-ABBOTT-10P-163-0682898-00

PATIENT
  Sex: Female
  Weight: 68.1 kg

DRUGS (12)
  1. PLENDIL [Concomitant]
     Indication: HYPERTENSION
  2. CALCIUM ACETATE [Concomitant]
     Indication: PRODUCT USED FOR UNKNOWN INDICATION
  3. NIASPAN [Suspect]
     Indication: BLOOD TRIGLYCERIDES INCREASED
     Dates: start: 20101028
  4. DIGOXIN [Concomitant]
     Indication: HYPERTENSION
  5. M.V.I. [Concomitant]
     Indication: PRODUCT USED FOR UNKNOWN INDICATION
  6. NIASPAN [Suspect]
     Indication: BLOOD TRIGLYCERIDES INCREASED
     Dates: start: 20100501, end: 20101027
  7. ATENOLOL [Concomitant]
     Indication: HYPERTENSION
  8. RANTINADINE [Concomitant]
     Indication: GASTROOESOPHAGEAL REFLUX DISEASE
  9. HYZAAR [Concomitant]
     Indication: HYPERTENSION
  10. FISH OIL [Concomitant]
     Indication: PRODUCT USED FOR UNKNOWN INDICATION
  11. NIASPAN [Suspect]
  12. XANAX [Concomitant]
     Indication: ANXIETY

REACTIONS (4)
  - FEELING JITTERY [None]
  - HOT FLUSH [None]
  - PRURITUS [None]
  - ERYTHEMA [None]
